FAERS Safety Report 7794296-6 (Version None)
Quarter: 2011Q4

REPORT INFORMATION
  Report Type: 
  Country: None (occurrence: None)
  Receive Date: 20111004
  Receipt Date: 20110919
  Transmission Date: 20120403
  Serious: Yes (Other)
  Sender: FDA-Public Use
  Company Number: CZ-UCBSA-042041

PATIENT
  Sex: Female

DRUGS (3)
  1. CIMZIA [Suspect]
     Indication: RHEUMATOID ARTHRITIS
     Route: 058
     Dates: start: 20110907
  2. METHOTREXATE SODIUM [Concomitant]
  3. MEDROL [Concomitant]
     Dosage: 4 MG EVERY OTHER DAY

REACTIONS (6)
  - CHILLS [None]
  - BODY TEMPERATURE INCREASED [None]
  - PAIN IN EXTREMITY [None]
  - MYCOBACTERIUM TUBERCULOSIS COMPLEX TEST POSITIVE [None]
  - OEDEMA PERIPHERAL [None]
  - ERYTHEMA [None]
